FAERS Safety Report 9282347 (Version 1)
Quarter: 2013Q2

REPORT INFORMATION
  Report Type: Spontaneous
  Country: US (occurrence: None)
  Receive Date: 20130509
  Receipt Date: 20130509
  Transmission Date: 20140414
  Serious: No
  Sender: FDA-Public Use
  Company Number: None

PATIENT
  Sex: 0

DRUGS (1)
  1. NORTRIPTYLINE [Suspect]

REACTIONS (3)
  - Abdominal distension [None]
  - Feeling abnormal [None]
  - No reaction on previous exposure to drug [None]
